FAERS Safety Report 9993757 (Version 2)
Quarter: 2014Q2

REPORT INFORMATION
  Report Type: Spontaneous
  Country: CO (occurrence: CO)
  Receive Date: 20140310
  Receipt Date: 20140402
  Transmission Date: 20141212
  Serious: Yes (Hospitalization)
  Sender: FDA-Public Use
  Company Number: CO-BIOMARINAP-CO-2014-102708

PATIENT
  Age: 9 Year
  Sex: Male
  Weight: 19 kg

DRUGS (1)
  1. NAGLAZYME [Suspect]
     Indication: MUCOPOLYSACCHARIDOSIS VI
     Dosage: 20 MG, QW
     Route: 041
     Dates: start: 20080331

REACTIONS (3)
  - Cardiomegaly [Not Recovered/Not Resolved]
  - Pulmonary oedema [Unknown]
  - Pulmonary hypertension [Unknown]
